FAERS Safety Report 4690267-7 (Version None)
Quarter: 2005Q2

REPORT INFORMATION
  Report Type: 
  Country: None (occurrence: None)
  Receive Date: 20050615
  Receipt Date: 20050520
  Transmission Date: 20051028
  Serious: Yes (Other)
  Sender: FDA-Public Use
  Company Number: US-GLAXOSMITHKLINE-A0559575A

PATIENT
  Age: 6 Year
  Sex: Male
  Weight: 32.3 kg

DRUGS (4)
  1. ADVAIR [Suspect]
     Indication: ASTHMA
     Dosage: 1PUFF TWICE PER DAY
     Route: 055
     Dates: start: 20050501, end: 20050501
  2. SINGULAIR [Concomitant]
     Indication: ASTHMA
     Dosage: 1TAB PER DAY
     Route: 048
     Dates: start: 20041201
  3. BENADRYL [Concomitant]
     Indication: MULTIPLE ALLERGIES
     Route: 048
  4. ALBUTEROL [Concomitant]
     Route: 055
     Dates: start: 20050501

REACTIONS (3)
  - ABNORMAL BEHAVIOUR [None]
  - AGGRESSION [None]
  - PERSONALITY CHANGE [None]
